FAERS Safety Report 21711159 (Version 2)
Quarter: 2022Q4

REPORT INFORMATION
  Report Type: Spontaneous
  Country: CA (occurrence: CA)
  Receive Date: 20221212
  Receipt Date: 20221214
  Transmission Date: 20230113
  Serious: Yes (Other)
  Sender: FDA-Public Use
  Company Number: CA-JNJFOC-20221216729

PATIENT
  Age: 60 Year
  Sex: Male

DRUGS (11)
  1. REMICADE [Suspect]
     Active Substance: INFLIXIMAB
     Indication: Rheumatoid arthritis
     Route: 041
  2. ACETAMINOPHEN\OXYCODONE HYDROCHLORIDE [Concomitant]
     Active Substance: ACETAMINOPHEN\OXYCODONE HYDROCHLORIDE
  3. ATIVAN [Concomitant]
     Active Substance: LORAZEPAM
     Route: 060
  4. BILASTINE [Concomitant]
     Active Substance: BILASTINE
  5. DILTIAZEM [Concomitant]
     Active Substance: DILTIAZEM
  6. FAMOTIDINE [Concomitant]
     Active Substance: FAMOTIDINE
  7. HYDROXYCHLOROQUINE SULFATE [Concomitant]
     Active Substance: HYDROXYCHLOROQUINE SULFATE
  8. LEFLUNOMIDE [Concomitant]
     Active Substance: LEFLUNOMIDE
  9. NABILONE [Concomitant]
     Active Substance: NABILONE
  10. PREDNISONE [Concomitant]
     Active Substance: PREDNISONE
  11. TRAZODONE [Concomitant]
     Active Substance: TRAZODONE HYDROCHLORIDE

REACTIONS (10)
  - Haemorrhage [Not Recovered/Not Resolved]
  - Eating disorder [Not Recovered/Not Resolved]
  - Speech disorder [Not Recovered/Not Resolved]
  - Eyelid margin crusting [Not Recovered/Not Resolved]
  - Frustration tolerance decreased [Not Recovered/Not Resolved]
  - Dry skin [Not Recovered/Not Resolved]
  - Eczema [Not Recovered/Not Resolved]
  - Rash macular [Not Recovered/Not Resolved]
  - Infusion related reaction [Not Recovered/Not Resolved]
  - Drug ineffective [Not Recovered/Not Resolved]
